FAERS Safety Report 8804547 (Version 1)
Quarter: 2012Q4

REPORT INFORMATION
  Report Type: 
  Country: US (occurrence: US)
  Receive Date: 20120924
  Receipt Date: 20120924
  Transmission Date: 20130627
  Serious: No
  Sender: FDA-Public Use
  Company Number: US-009507513-1208USA009738

PATIENT
  Sex: Male

DRUGS (3)
  1. PEG-INTRON [Suspect]
     Indication: HEPATITIS C
     Dosage: UNK
     Dates: start: 20120723
  2. REBETOL [Suspect]
     Indication: HEPATITIS C
     Dosage: 6 DF, daily
     Dates: start: 20120723
  3. REBETOL [Suspect]
     Dosage: 4 pills daily

REACTIONS (4)
  - Anaemia [Unknown]
  - Dizziness [Unknown]
  - Asthenia [Unknown]
  - Abdominal pain upper [Unknown]
